FAERS Safety Report 8861936 (Version 1)
Quarter: 2012Q4

REPORT INFORMATION
  Report Type: 
  Country: FR (occurrence: FR)
  Receive Date: 20121026
  Receipt Date: 20121026
  Transmission Date: 20130627
  Serious: Yes (Other)
  Sender: FDA-Public Use
  Company Number: FR-NOVOPROD-356524

PATIENT
  Age: 54 Year
  Sex: Male
  Weight: 116 kg

DRUGS (5)
  1. VICTOZA [Suspect]
     Indication: TYPE 2 DIABETES MELLITUS
     Dosage: Unknown
     Route: 065
     Dates: start: 20100701, end: 20110110
  2. AMAREL [Concomitant]
     Dosage: 2 mg, qd
     Route: 048
     Dates: start: 200906
  3. GLUCOPHAGE [Concomitant]
     Dosage: 500 mg, qd
     Dates: start: 201106
  4. LIPUR [Concomitant]
     Dosage: 900 mg, qd
     Route: 048
     Dates: start: 200906
  5. COVERSYL                           /00790702/ [Concomitant]
     Dosage: 5 mg, qd
     Route: 048
     Dates: start: 200906

REACTIONS (3)
  - Pharyngitis [Recovered/Resolved]
  - Nausea [Recovered/Resolved]
  - Diarrhoea [Recovered/Resolved]
